FAERS Safety Report 16137524 (Version 2)
Quarter: 2019Q2

REPORT INFORMATION
  Report Type: Spontaneous
  Country: GB (occurrence: GB)
  Receive Date: 20190401
  Receipt Date: 20190504
  Transmission Date: 20190711
  Serious: Yes (Other)
  Sender: FDA-Public Use
  Company Number: GB-ACCORD-116383

PATIENT
  Age: 77 Year
  Sex: Female
  Weight: 65 kg

DRUGS (3)
  1. FUROSEMIDE. [Suspect]
     Active Substance: FUROSEMIDE
     Indication: CARDIAC FAILURE
     Route: 042
  2. RIVAROXABAN [Concomitant]
     Active Substance: RIVAROXABAN
     Dosage: REDUCED
  3. RAMIPRIL. [Concomitant]
     Active Substance: RAMIPRIL
     Dosage: HELD

REACTIONS (1)
  - Acute kidney injury [Recovered/Resolved]
